APPROVED DRUG PRODUCT: TICAGRELOR
Active Ingredient: TICAGRELOR
Strength: 60MG
Dosage Form/Route: TABLET;ORAL
Application: A208597 | Product #001 | TE Code: AB
Applicant: MYLAN PHARMACEUTICALS INC
Approved: Jul 9, 2021 | RLD: No | RS: No | Type: RX